FAERS Safety Report 5804830-0 (Version None)
Quarter: 2008Q3

REPORT INFORMATION
  Report Type: 
  Country: None (occurrence: None)
  Receive Date: 20080709
  Receipt Date: 20080626
  Transmission Date: 20090109
  Serious: Yes (Other)
  Sender: FDA-Public Use
  Company Number: CA-ELI_LILLY_AND_COMPANY-CA200806004095

PATIENT
  Age: 30 Year
  Sex: Female

DRUGS (8)
  1. CYMBALTA [Suspect]
     Indication: FIBROMYALGIA
     Dosage: 60 MG, UNK
     Route: 048
     Dates: start: 20080612, end: 20080613
  2. DARVON [Concomitant]
  3. ADVIL LIQUI-GELS [Concomitant]
  4. BENADRYL [Concomitant]
  5. ATIVAN [Concomitant]
     Dosage: 1 MG, UNK
  6. DEMEROL [Concomitant]
     Dosage: 50 MG, UNK
  7. GRAVOL TAB [Concomitant]
     Dosage: 50 MG, UNK
  8. IMOVANE [Concomitant]
     Dosage: 7.5 MG, UNK

REACTIONS (4)
  - BLINDNESS [None]
  - EYE PAIN [None]
  - PHOTOPHOBIA [None]
  - VISION BLURRED [None]
